FAERS Safety Report 21856814 (Version 1)
Quarter: 2023Q1

REPORT INFORMATION
  Report Type: Report from Study
  Country: US (occurrence: US)
  Receive Date: 20230113
  Receipt Date: 20230113
  Transmission Date: 20230418
  Serious: No
  Sender: FDA-Public Use
  Company Number: US-ABBVIE-4236232

PATIENT
  Age: 58 Year
  Sex: Male

DRUGS (1)
  1. HUMIRA [Suspect]
     Active Substance: ADALIMUMAB
     Indication: Psoriatic arthropathy
     Dosage: FORM STRENGTH: 40 MG; ONSET DATE FOR ALL EVENTS EXCEPT COVID TEST POSITIVE WERE 2022
     Route: 058

REACTIONS (4)
  - Joint swelling [Unknown]
  - Pain in extremity [Unknown]
  - SARS-CoV-2 test positive [Recovered/Resolved]
  - Joint stiffness [Unknown]

NARRATIVE: CASE EVENT DATE: 20221206
